FAERS Safety Report 6660098-7 (Version None)
Quarter: 2010Q1

REPORT INFORMATION
  Report Type: 
  Country: None (occurrence: None)
  Receive Date: 20100331
  Receipt Date: 20100301
  Transmission Date: 20100710
  Serious: No
  Sender: FDA-Public Use
  Company Number: 2008BI015002

PATIENT
  Age: 34 Year
  Sex: Female

DRUGS (1)
  1. TYSABRI [Suspect]
     Indication: MULTIPLE SCLEROSIS
     Route: 042
     Dates: start: 20080509, end: 20091116

REACTIONS (11)
  - ADDISON'S DISEASE [None]
  - COELIAC DISEASE [None]
  - DECREASED APPETITE [None]
  - DYSPNOEA [None]
  - FATIGUE [None]
  - HEADACHE [None]
  - INSOMNIA [None]
  - MULTIPLE SCLEROSIS [None]
  - NAUSEA [None]
  - STRESS [None]
  - TREMOR [None]
